FAERS Safety Report 21153781 (Version 1)
Quarter: 2022Q3

REPORT INFORMATION
  Report Type: Report from Study
  Country: US (occurrence: US)
  Receive Date: 20220801
  Receipt Date: 20220801
  Transmission Date: 20221027
  Serious: No
  Sender: FDA-Public Use
  Company Number: US-BIOVITRUM-2022US09001

PATIENT
  Age: 13 Year
  Sex: Female

DRUGS (2)
  1. KINERET [Suspect]
     Active Substance: ANAKINRA
     Dates: start: 20180706
  2. KINERET [Suspect]
     Active Substance: ANAKINRA

REACTIONS (2)
  - Onychomycosis [Unknown]
  - Off label use [Unknown]

NARRATIVE: CASE EVENT DATE: 20180706
